FAERS Safety Report 5107618-1 (Version None)
Quarter: 2006Q3

REPORT INFORMATION
  Report Type: 
  Country: None (occurrence: None)
  Receive Date: 20060919
  Receipt Date: 20060911
  Transmission Date: 20061208
  Serious: Yes (Hospitalization)
  Sender: FDA-Public Use
  Company Number: US-BRISTOL-MYERS SQUIBB COMPANY-13504360

PATIENT
  Age: 67 Year
  Sex: Female
  Weight: 47 kg

DRUGS (4)
  1. ERBITUX [Suspect]
     Indication: COLON CANCER
     Dates: start: 20060802, end: 20060802
  2. LEUCOVORIN CALCIUM [Suspect]
     Indication: COLON CANCER
     Dates: start: 20060726, end: 20060726
  3. FLUOROURACIL [Suspect]
     Indication: COLON CANCER
     Dates: start: 20060713, end: 20060726
  4. OXALIPLATIN [Suspect]
     Indication: COLON CANCER
     Dates: start: 20060726, end: 20060726

REACTIONS (2)
  - CAECITIS [None]
  - FEBRILE NEUTROPENIA [None]
